FAERS Safety Report 12169126 (Version 3)
Quarter: 2016Q2

REPORT INFORMATION
  Report Type: Spontaneous
  Country: JP (occurrence: JP)
  Receive Date: 20160310
  Receipt Date: 20160415
  Transmission Date: 20160815
  Serious: Yes (Hospitalization)
  Sender: FDA-Public Use
  Company Number: JP-BAXTER-2015BAX064748

PATIENT
  Age: 14 Year
  Sex: Female

DRUGS (18)
  1. UROMITEXAN 400 MG [Suspect]
     Active Substance: MESNA
     Indication: INFECTION PROPHYLAXIS
     Route: 041
     Dates: start: 20150723
  2. UROMITEXAN 400 MG [Suspect]
     Active Substance: MESNA
     Indication: INTERSTITIAL LUNG DISEASE
     Route: 041
     Dates: start: 20151005
  3. UROMITEXAN 400 MG [Suspect]
     Active Substance: MESNA
     Indication: OFF LABEL USE
  4. ENDOXAN 1G [Suspect]
     Active Substance: CYCLOPHOSPHAMIDE
     Indication: OFF LABEL USE
     Dosage: 4TH COURSE OF PULSE THERAPY STARTED AT 12:00 P.M. AND COMPLETED AT 2:00 P.M.
     Route: 041
     Dates: start: 20151005, end: 20151005
  5. ENDOXAN 1G [Suspect]
     Active Substance: CYCLOPHOSPHAMIDE
     Dosage: 5TH COURSE OF PULSE THERAPY STARTED AT 11:26 A.M. AND COMPLETED IN 2 HOURS
     Route: 041
     Dates: start: 20151106, end: 20151106
  6. BACTRAMIN [Concomitant]
     Active Substance: SULFAMETHOXAZOLE\TRIMETHOPRIM
     Indication: BACTERIAL INFECTION
     Route: 048
     Dates: start: 20150718
  7. ENDOXAN 1G [Suspect]
     Active Substance: CYCLOPHOSPHAMIDE
     Indication: DERMATOMYOSITIS
     Route: 041
     Dates: start: 20150723, end: 20150825
  8. CICLOSPORIN [Suspect]
     Active Substance: CYCLOSPORINE
     Indication: DERMATOMYOSITIS
     Route: 048
     Dates: start: 20150910
  9. CICLOSPORIN [Suspect]
     Active Substance: CYCLOSPORINE
     Indication: INTERSTITIAL LUNG DISEASE
  10. UROMITEXAN 400 MG [Suspect]
     Active Substance: MESNA
     Indication: DERMATOMYOSITIS
     Route: 041
     Dates: start: 20151106
  11. REBAMIPIDE [Concomitant]
     Active Substance: REBAMIPIDE
     Indication: PROPHYLAXIS AGAINST GASTROINTESTINAL ULCER
     Route: 048
     Dates: start: 20150522
  12. PREDONINE [Suspect]
     Active Substance: PREDNISOLONE\PREDNISOLONE ACETATE\PREDNISOLONE SODIUM SUCCINATE
     Indication: DERMATOMYOSITIS
     Route: 048
     Dates: start: 20150717, end: 20151119
  13. PREDONINE [Suspect]
     Active Substance: PREDNISOLONE\PREDNISOLONE ACETATE\PREDNISOLONE SODIUM SUCCINATE
     Indication: INTERSTITIAL LUNG DISEASE
     Route: 048
     Dates: start: 20151120
  14. GRANISETRON HYDROCHLORIDE. [Suspect]
     Active Substance: GRANISETRON HYDROCHLORIDE
     Indication: DERMATOMYOSITIS
     Route: 041
     Dates: start: 20150723
  15. GRANISETRON HYDROCHLORIDE. [Suspect]
     Active Substance: GRANISETRON HYDROCHLORIDE
     Route: 041
     Dates: start: 20151106
  16. ENDOXAN 1G [Suspect]
     Active Substance: CYCLOPHOSPHAMIDE
     Indication: INTERSTITIAL LUNG DISEASE
     Dosage: INCREASED DOSE
     Route: 041
     Dates: start: 20150911
  17. GRANISETRON HYDROCHLORIDE. [Suspect]
     Active Substance: GRANISETRON HYDROCHLORIDE
     Indication: INTERSTITIAL LUNG DISEASE
     Route: 041
     Dates: start: 20151005
  18. ONEALFA [Concomitant]
     Active Substance: ALFACALCIDOL
     Indication: OSTEOPOROSIS
     Route: 048
     Dates: start: 20150925

REACTIONS (6)
  - Oropharyngeal discomfort [Recovered/Resolved]
  - Pyrexia [Recovered/Resolved]
  - Erythema [Recovered/Resolved]
  - Rash [Recovered/Resolved]
  - Pruritus [Unknown]
  - Erythema [Recovered/Resolved]

NARRATIVE: CASE EVENT DATE: 20151005
